FAERS Safety Report 9168693 (Version 1)
Quarter: 2013Q1

REPORT INFORMATION
  Report Type: Spontaneous
  Country: JP (occurrence: None)
  Receive Date: 20130308
  Receipt Date: 20130308
  Transmission Date: 20140127
  Serious: Yes (Other)
  Sender: FDA-Public Use
  Company Number: 2013P1002862

PATIENT
  Age: 37 Year
  Sex: Female

DRUGS (3)
  1. PROGESTERONE [Suspect]
     Indication: PREMATURE DELIVERY
     Route: 030
  2. PROGESTERONE [Suspect]
     Indication: PROPHYLAXIS
     Route: 030
  3. INSULIN (LISPRO) [Concomitant]

REACTIONS (3)
  - Increased insulin requirement [None]
  - Blood glucose abnormal [None]
  - Exposure during pregnancy [None]
